FAERS Safety Report 16952419 (Version 1)
Quarter: 2019Q4

REPORT INFORMATION
  Report Type: Spontaneous
  Country: US (occurrence: US)
  Receive Date: 20191023
  Receipt Date: 20191023
  Transmission Date: 20200122
  Serious: No
  Sender: FDA-Public Use
  Company Number: US-TEVA-2019-US-1124730

PATIENT
  Age: 17 Year
  Sex: Female

DRUGS (2)
  1. MEDROXYPROGESTERONE ACETATE INJECTABLE SUSPENSION [Suspect]
     Active Substance: MEDROXYPROGESTERONE ACETATE
     Indication: CONTRACEPTION
     Dosage: DOSE STRENGTH: 150/1 MG/ML
     Route: 065
     Dates: start: 20191008
  2. MEDROXYPROGESTERONE ACETATE INJECTABLE SUSPENSION [Suspect]
     Active Substance: MEDROXYPROGESTERONE ACETATE
     Route: 065
     Dates: start: 20191014

REACTIONS (1)
  - Inappropriate schedule of product administration [Unknown]

NARRATIVE: CASE EVENT DATE: 20191014
